FAERS Safety Report 9989281 (Version 1)
Quarter: 2014Q1

REPORT INFORMATION
  Report Type: Spontaneous
  Country: US (occurrence: US)
  Receive Date: 20140310
  Receipt Date: 20140310
  Transmission Date: 20141002
  Serious: Yes (Other)
  Sender: FDA-Public Use
  Company Number: US-TEVA-467058USA

PATIENT
  Age: 17 Year
  Sex: Female

DRUGS (5)
  1. MEDROXYPROGESTERONE [Suspect]
  2. MONTELUKAST [Suspect]
  3. AZITHROMYCIN [Suspect]
     Indication: STREPTOCOCCAL INFECTION
  4. PREDNISONE [Suspect]
  5. DIPHENHYDRAMINE HYDROCHLORIDE [Concomitant]

REACTIONS (3)
  - Anaphylactic reaction [Unknown]
  - Drug hypersensitivity [Unknown]
  - Streptococcal infection [Unknown]
